FAERS Safety Report 9537878 (Version 1)
Quarter: 2013Q3

REPORT INFORMATION
  Report Type: Report from Study
  Country: US (occurrence: US)
  Receive Date: 20130919
  Receipt Date: 20130919
  Transmission Date: 20140515
  Serious: Yes (Death)
  Sender: FDA-Public Use
  Company Number: US-ROCHE-1278094

PATIENT
  Sex: Female

DRUGS (2)
  1. XELODA [Suspect]
     Indication: RECTOSIGMOID CANCER
     Dosage: 14 DAYS ON, 7 DAYS OFF  (FORM OF ADMINISTRATION: 500 MG)
     Route: 065
  2. XELODA [Suspect]
     Indication: METASTASES TO LIVER

REACTIONS (1)
  - Death [Fatal]
